FAERS Safety Report 23105066 (Version 2)
Quarter: 2023Q4

REPORT INFORMATION
  Report Type: Spontaneous
  Country: US (occurrence: US)
  Receive Date: 20231025
  Receipt Date: 20231110
  Transmission Date: 20240110
  Serious: Yes (Hospitalization, Other)
  Sender: FDA-Public Use
  Company Number: US-AMNEAL PHARMACEUTICALS-2023-AMRX-03689

PATIENT
  Age: 49 Year
  Sex: Female
  Weight: 68.027 kg

DRUGS (2)
  1. PREGABALIN [Suspect]
     Active Substance: PREGABALIN
     Indication: Neuralgia
     Dosage: 600MG A DAY 3 TABLETS 3 TIMES A DAY
     Route: 048
     Dates: start: 20220720, end: 20230918
  2. LEVOTHYROXINE SODIUM [Concomitant]
     Active Substance: LEVOTHYROXINE SODIUM
     Indication: Product used for unknown indication
     Dosage: UNK
     Route: 065

REACTIONS (12)
  - Immobile [Not Recovered/Not Resolved]
  - Loss of consciousness [Unknown]
  - Paralysis [Not Recovered/Not Resolved]
  - Asthenia [Not Recovered/Not Resolved]
  - Lethargy [Not Recovered/Not Resolved]
  - Aphasia [Not Recovered/Not Resolved]
  - Menopause [Unknown]
  - Fall [Unknown]
  - Vision blurred [Unknown]
  - Gait disturbance [Unknown]
  - Dyskinesia [Unknown]
  - Dysarthria [Unknown]

NARRATIVE: CASE EVENT DATE: 20230401
